FAERS Safety Report 6603324-2 (Version None)
Quarter: 2010Q1

REPORT INFORMATION
  Report Type: 
  Country: None (occurrence: None)
  Receive Date: 20100226
  Receipt Date: 20090127
  Transmission Date: 20100710
  Serious: No
  Sender: FDA-Public Use
  Company Number: A0765458A

PATIENT
  Age: 51 Year
  Sex: Female

DRUGS (2)
  1. VALTREX [Suspect]
     Indication: GENITAL HERPES
     Dosage: 500MG PER DAY
     Route: 048
     Dates: start: 20070101, end: 20090120
  2. NO CONCURRENT MEDICATION [Concomitant]

REACTIONS (3)
  - DEHYDRATION [None]
  - MICTURITION DISORDER [None]
  - URINARY TRACT INFECTION [None]
